FAERS Safety Report 10015652 (Version 1)
Quarter: 2014Q1

REPORT INFORMATION
  Report Type: Spontaneous
  Country: US (occurrence: US)
  Receive Date: 20140317
  Receipt Date: 20140317
  Transmission Date: 20141002
  Serious: Yes (Other)
  Sender: FDA-Public Use
  Company Number: PHEH2014US005013

PATIENT
  Sex: Female

DRUGS (3)
  1. ZOMETA [Suspect]
     Indication: OSTEOPOROSIS PROPHYLAXIS
     Route: 042
     Dates: start: 2008, end: 2011
  2. ZOMETA [Suspect]
     Indication: OFF LABEL USE
  3. AREDIA [Suspect]
     Route: 042

REACTIONS (12)
  - Bone disorder [Unknown]
  - Fracture [Unknown]
  - Pathological fracture [Unknown]
  - Injury [Unknown]
  - Pain [Unknown]
  - Emotional distress [Unknown]
  - Anxiety [Unknown]
  - Physical disability [Unknown]
  - Deformity [Unknown]
  - Balance disorder [Unknown]
  - Fall [Unknown]
  - Femur fracture [Unknown]
